FAERS Safety Report 18512632 (Version 1)
Quarter: 2020Q4

REPORT INFORMATION
  Report Type: Report from Study
  Country: US (occurrence: US)
  Receive Date: 20201117
  Receipt Date: 20201117
  Transmission Date: 20210114
  Serious: Yes (Hospitalization)
  Sender: FDA-Public Use
  Company Number: US-RETROPHIN, INC.-2020RTN00145

PATIENT
  Sex: Male

DRUGS (1)
  1. CHOLIC ACID [Suspect]
     Active Substance: CHOLIC ACID
     Indication: LIPIDOSIS
     Dosage: 250 MG, 2X/DAY
     Dates: start: 20190913

REACTIONS (1)
  - Nephrolithiasis [Unknown]
